FAERS Safety Report 4724864-7 (Version None)
Quarter: 2005Q3

REPORT INFORMATION
  Report Type: 
  Country: None (occurrence: None)
  Receive Date: 20050722
  Receipt Date: 20050711
  Transmission Date: 20060218
  Serious: Yes (Hospitalization)
  Sender: FDA-Public Use
  Company Number: 2005102431

PATIENT
  Sex: Female

DRUGS (1)
  1. CELEBREX [Suspect]
     Indication: ILL-DEFINED DISORDER
     Dosage: (100 MG, AS NEEDED), ORAL
     Route: 048
     Dates: start: 20041001, end: 20050630

REACTIONS (1)
  - HYPERSENSITIVITY [None]
